FAERS Safety Report 6597728-4 (Version None)
Quarter: 2010Q1

REPORT INFORMATION
  Report Type: 
  Country: None (occurrence: None)
  Receive Date: 20100216
  Receipt Date: 20100128
  Transmission Date: 20100710
  Serious: Yes (Other)
  Sender: FDA-Public Use
  Company Number: 502184

PATIENT
  Age: 56 Year
  Sex: Female

DRUGS (1)
  1. PACLITAXEL [Suspect]
     Dosage: 175 MG/M2, 1 MONTH, INTRAVENOUS
     Route: 042
     Dates: start: 20100101, end: 20100104

REACTIONS (5)
  - CHEST DISCOMFORT [None]
  - DYSPNOEA [None]
  - ERYTHEMA [None]
  - FLUSHING [None]
  - HEADACHE [None]
